FAERS Safety Report 18747368 (Version 5)
Quarter: 2021Q2

REPORT INFORMATION
  Report Type: Spontaneous
  Country: US (occurrence: US)
  Receive Date: 20210115
  Receipt Date: 20210402
  Transmission Date: 20210717
  Serious: Yes (Hospitalization, Other)
  Sender: FDA-Public Use
  Company Number: US-JNJFOC-20210102379

PATIENT
  Age: 16 Year
  Sex: Female

DRUGS (6)
  1. VELETRI [Suspect]
     Active Substance: EPOPROSTENOL
     Indication: PRODUCT USED FOR UNKNOWN INDICATION
     Route: 042
  2. AMBRISENTAN [Suspect]
     Active Substance: AMBRISENTAN
     Route: 048
     Dates: start: 20201206
  3. AMBRISENTAN [Suspect]
     Active Substance: AMBRISENTAN
     Indication: PULMONARY HYPERTENSION
     Route: 048
  4. SILDENAFIL. [Concomitant]
     Active Substance: SILDENAFIL
  5. WARFARIN [Concomitant]
     Active Substance: WARFARIN
  6. AMBRISENTAN [Suspect]
     Active Substance: AMBRISENTAN
     Indication: PULMONARY ARTERIAL HYPERTENSION
     Route: 048
     Dates: start: 20201216

REACTIONS (18)
  - Ill-defined disorder [Not Recovered/Not Resolved]
  - Productive cough [Unknown]
  - Application site irritation [Unknown]
  - Skin infection [Unknown]
  - Catheter site rash [Not Recovered/Not Resolved]
  - Vascular device infection [Unknown]
  - Flushing [Unknown]
  - Nausea [Not Recovered/Not Resolved]
  - Asthenia [Unknown]
  - Application site erythema [Unknown]
  - Vomiting [Not Recovered/Not Resolved]
  - Anxiety [Unknown]
  - Catheter site pain [Not Recovered/Not Resolved]
  - Catheter site pruritus [Unknown]
  - Rash [Recovered/Resolved]
  - Off label use [Unknown]
  - Dermatitis contact [Unknown]
  - Headache [Not Recovered/Not Resolved]

NARRATIVE: CASE EVENT DATE: 20201222
